FAERS Safety Report 9832459 (Version 3)
Quarter: 2014Q1

REPORT INFORMATION
  Report Type: Report from Study
  Country: CA (occurrence: CA)
  Receive Date: 20140121
  Receipt Date: 20140225
  Transmission Date: 20141002
  Serious: Yes (Other)
  Sender: FDA-Public Use
  Company Number: CA-JNJFOC-20131209189

PATIENT
  Age: 48 Year
  Sex: Male
  Weight: 114.5 kg

DRUGS (8)
  1. REMICADE [Suspect]
     Indication: ANKYLOSING SPONDYLITIS
     Route: 042
     Dates: start: 20120508
  2. REMICADE [Suspect]
     Indication: ANKYLOSING SPONDYLITIS
     Route: 042
     Dates: start: 20120326
  3. REMICADE [Suspect]
     Indication: ANKYLOSING SPONDYLITIS
     Route: 042
     Dates: start: 20120117
  4. DOVOBET [Concomitant]
     Indication: PSORIASIS
     Route: 061
  5. PERCOCET [Concomitant]
     Indication: ANKYLOSING SPONDYLITIS
     Route: 048
  6. MARIJUANA [Concomitant]
     Indication: ANKYLOSING SPONDYLITIS
     Route: 065
  7. LIPITOR [Concomitant]
     Indication: HYPERCHOLESTEROLAEMIA
     Route: 048
  8. NAPROXEN [Concomitant]
     Indication: ANKYLOSING SPONDYLITIS
     Route: 048

REACTIONS (1)
  - Iritis [Recovered/Resolved]
